FAERS Safety Report 9081802 (Version 1)
Quarter: 2013Q1

REPORT INFORMATION
  Report Type: Spontaneous
  Country: DE (occurrence: DE)
  Receive Date: 20130131
  Receipt Date: 20130131
  Transmission Date: 20140127
  Serious: Yes (Death, Other)
  Sender: FDA-Public Use
  Company Number: DE-ACCORD-016176

PATIENT
  Age: 40 Year
  Sex: Male

DRUGS (3)
  1. AVASTIN [Suspect]
     Indication: LUNG ADENOCARCINOMA
  2. PACLITAXEL [Suspect]
     Indication: LUNG ADENOCARCINOMA
  3. CARBOPLATIN [Suspect]
     Indication: LUNG ADENOCARCINOMA
     Dosage: AREA UNDER THE CURVE 6

REACTIONS (3)
  - Oesophagobronchial fistula [Recovering/Resolving]
  - Haemoptysis [Fatal]
  - Off label use [Unknown]
